FAERS Safety Report 10384118 (Version 1)
Quarter: 2014Q3

REPORT INFORMATION
  Report Type: Spontaneous
  Country: US (occurrence: None)
  Receive Date: 20140812
  Receipt Date: 20140812
  Transmission Date: 20150326
  Serious: Yes (Life-Threatening, Hospitalization, Other)
  Sender: FDA-Public Use
  Company Number: 001782728A

PATIENT
  Age: 48 Year
  Sex: Female

DRUGS (11)
  1. PROACTIV PLUS PORE TARGETING TREATMENT [Suspect]
     Active Substance: BENZOYL PEROXIDE
     Indication: ACNE
     Dosage: TWICE DAILY DERMAL
     Dates: start: 20140718, end: 20140719
  2. DEMERAL [Concomitant]
     Active Substance: MEPERIDINE
  3. PROACTIVPLUS SKIN SMOOTHING EXFOLIATOR [Suspect]
     Active Substance: BENZOYL PEROXIDE
     Indication: ACNE
     Dosage: TWICE DAILY DERMAL
     Dates: start: 20140718, end: 20140719
  4. PROACTIV PLUS MARK FADING [Suspect]
     Active Substance: GLYCOLIC ACID\SALICYLIC ACID
     Indication: ACNE
     Dosage: TWICE DAILY DERMAL
     Dates: start: 20140718, end: 20140719
  5. NEOSPORIN [Concomitant]
     Active Substance: BACITRACIN ZINC\NEOMYCIN SULFATE\POLYMYXIN B SULFATE
  6. PROACTIV PLUS COMPLEXION PERFECTING HYDRATOR [Suspect]
     Active Substance: SALICYLIC ACID
     Indication: ACNE
     Dosage: TWICE DAILY DERMAL
     Dates: start: 20140718, end: 20140719
  7. EPIPEN [Concomitant]
     Active Substance: EPINEPHRINE
  8. BENADRYL [Concomitant]
     Active Substance: DIPHENHYDRAMINE HYDROCHLORIDE
  9. PROACTIV PLUS SKIN PURIFYING MASK [Suspect]
     Active Substance: SULFUR
     Indication: ACNE
     Dosage: TWICE DAILY DERMAL
     Dates: start: 20140718, end: 20140719
  10. 43 UNDISCLOSED MEDICATIONS [Concomitant]
  11. BLOOD PRESSURE MEDICATION [Concomitant]
     Active Substance: UNSPECIFIED INGREDIENT

REACTIONS (10)
  - Ocular hyperaemia [None]
  - Skin exfoliation [None]
  - Rash macular [None]
  - Eye swelling [None]
  - Pancreatic carcinoma [None]
  - Aggression [None]
  - Eye discharge [None]
  - Swelling face [None]
  - Eye irritation [None]
  - Loss of consciousness [None]

NARRATIVE: CASE EVENT DATE: 20140718
